FAERS Safety Report 5995074-0 (Version None)
Quarter: 2008Q4

REPORT INFORMATION
  Report Type: 
  Country: None (occurrence: None)
  Receive Date: 20081210
  Receipt Date: 20081204
  Transmission Date: 20090506
  Serious: Yes (Hospitalization)
  Sender: FDA-Public Use
  Company Number: TRP_06003_2008

PATIENT
  Age: 54 Year
  Sex: Male

DRUGS (2)
  1. ADVAFERON [Suspect]
     Indication: HEPATITIS C
     Dosage: (18 MIU, /D SUBCUTANEOUS), (18 MIU, 3XWEEKLY SUBCUTANEOUS)
     Route: 058
     Dates: start: 20040408, end: 20040401
  2. ADVAFERON [Suspect]
     Indication: HEPATITIS C
     Dosage: (18 MIU, /D SUBCUTANEOUS), (18 MIU, 3XWEEKLY SUBCUTANEOUS)
     Route: 058
     Dates: start: 20040101

REACTIONS (1)
  - INTESTINAL ISCHAEMIA [None]
